FAERS Safety Report 18454748 (Version 5)
Quarter: 2022Q2

REPORT INFORMATION
  Report Type: Report from Study
  Country: AU (occurrence: AU)
  Receive Date: 20201102
  Receipt Date: 20220616
  Transmission Date: 20220721
  Serious: Yes (Hospitalization, Other)
  Sender: FDA-Public Use
  Company Number: AU-TAKEDA-2020TUS024101

PATIENT
  Sex: Male

DRUGS (8)
  1. VEDOLIZUMAB [Suspect]
     Active Substance: VEDOLIZUMAB
     Indication: Colitis ulcerative
     Dosage: 300 MILLIGRAM
     Route: 042
  2. VEDOLIZUMAB [Suspect]
     Active Substance: VEDOLIZUMAB
     Dosage: 300 MILLIGRAM, Q4WEEKS
     Route: 042
  3. VEDOLIZUMAB [Suspect]
     Active Substance: VEDOLIZUMAB
     Indication: Colitis ulcerative
     Dosage: 108 MILLIGRAM, Q2WEEKS
     Route: 058
  4. ALLOPURINOL [Concomitant]
     Active Substance: ALLOPURINOL
     Dosage: 100 MILLIGRAM, QD
  5. BUDESONIDE [Concomitant]
     Active Substance: BUDESONIDE
     Dosage: 2 MILLIGRAM, QD
  6. COVERAM [Concomitant]
     Active Substance: AMLODIPINE\PERINDOPRIL
     Dosage: UNK UNK, QD
  7. VENLAFAXINE HYDROCHLORIDE [Concomitant]
     Active Substance: VENLAFAXINE HYDROCHLORIDE
     Dosage: 75 MILLIGRAM, QD
  8. MERCAPTOPURINE [Concomitant]
     Active Substance: MERCAPTOPURINE
     Dosage: 25 MILLIGRAM, QD

REACTIONS (3)
  - Infection [Unknown]
  - Colitis ulcerative [Recovering/Resolving]
  - Fall [Unknown]
